FAERS Safety Report 24163048 (Version 10)
Quarter: 2024Q4

REPORT INFORMATION
  Report Type: Spontaneous
  Country: JP (occurrence: JP)
  Receive Date: 20240801
  Receipt Date: 20241216
  Transmission Date: 20250115
  Serious: Yes (Hospitalization, Other)
  Sender: APELLIS PHARMACEUTICALS
  Company Number: JP-BIOVITRUM-2024-JP-001292

PATIENT

DRUGS (5)
  1. PEGCETACOPLAN [Suspect]
     Active Substance: PEGCETACOPLAN
     Indication: Paroxysmal nocturnal haemoglobinuria
     Dosage: TWICE PER WEEK
     Route: 058
     Dates: start: 20231204, end: 20231228
  2. PEGCETACOPLAN [Suspect]
     Active Substance: PEGCETACOPLAN
     Dosage: TWICE PER WEEK
     Route: 058
     Dates: start: 20240105, end: 20240216
  3. PEGCETACOPLAN [Suspect]
     Active Substance: PEGCETACOPLAN
     Dosage: TWICE PER WEEK
     Route: 058
     Dates: start: 20240301
  4. PEGCETACOPLAN [Suspect]
     Active Substance: PEGCETACOPLAN
     Dosage: 1080.000MG
     Route: 058
  5. PEGCETACOPLAN [Suspect]
     Active Substance: PEGCETACOPLAN
     Dosage: TWICE PER WEEK
     Route: 058
     Dates: start: 20240105

REACTIONS (31)
  - Haemoglobin decreased [Unknown]
  - Pyrexia [Recovering/Resolving]
  - Sepsis [Recovered/Resolved]
  - Cellulitis [Recovering/Resolving]
  - Renal impairment [Recovering/Resolving]
  - Influenza [Recovered/Resolved]
  - Malaise [Unknown]
  - Menstrual disorder [Unknown]
  - Platelet count decreased [Unknown]
  - Chills [Recovered/Resolved]
  - Nausea [Recovered/Resolved]
  - Vomiting [Recovered/Resolved]
  - Decreased appetite [Recovered/Resolved]
  - Streptococcus test positive [Not Recovered/Not Resolved]
  - Anaemia [Unknown]
  - Injection site pain [Recovering/Resolving]
  - Dizziness [Not Recovered/Not Resolved]
  - Headache [Not Recovered/Not Resolved]
  - Product dose omission issue [Unknown]
  - Injection site induration [Unknown]
  - Palpitations [Unknown]
  - Haemorrhage subcutaneous [Recovered/Resolved]
  - Pain in extremity [Not Recovered/Not Resolved]
  - Fatigue [Unknown]
  - Total complement activity increased [Unknown]
  - Haptoglobin decreased [Unknown]
  - Intermenstrual bleeding [Unknown]
  - Dyspnoea [Unknown]
  - Palpitations [Unknown]
  - Aplastic anaemia [Unknown]
  - Haemolysis [Recovered/Resolved]

NARRATIVE: CASE EVENT DATE: 20231228
